FAERS Safety Report 25544728 (Version 1)
Quarter: 2025Q3

REPORT INFORMATION
  Report Type: Spontaneous
  Country: US (occurrence: US)
  Receive Date: 20250711
  Receipt Date: 20250711
  Transmission Date: 20251021
  Serious: No
  Sender: SANOFI AVENTIS
  Company Number: US-SA-2025SA194023

PATIENT
  Sex: Male

DRUGS (32)
  1. DUPIXENT [Suspect]
     Active Substance: DUPILUMAB
     Indication: Chronic obstructive pulmonary disease
     Dosage: 300 MG, QOW
     Route: 058
     Dates: start: 20250605
  2. ACETAMINOPHEN [Concomitant]
     Active Substance: ACETAMINOPHEN
  3. ALBUTEROL SULFATE [Concomitant]
     Active Substance: ALBUTEROL SULFATE
  4. ALBUTEROL SULFATE [Concomitant]
     Active Substance: ALBUTEROL SULFATE
  5. ASPIRIN [Concomitant]
     Active Substance: ASPIRIN
  6. ATORVASTATIN [Concomitant]
     Active Substance: ATORVASTATIN
  7. AZELASTINE HYDROCHLORIDE [Concomitant]
     Active Substance: AZELASTINE HYDROCHLORIDE
  8. CAPSAICIN [Concomitant]
     Active Substance: CAPSAICIN
  9. DOFETILIDE [Concomitant]
     Active Substance: DOFETILIDE
  10. ELIQUIS [Concomitant]
     Active Substance: APIXABAN
  11. EPINEPHRINE [Concomitant]
     Active Substance: EPINEPHRINE
  12. ESCITALOPRAM [Concomitant]
     Active Substance: ESCITALOPRAM OXALATE
  13. FARXIGA [Concomitant]
     Active Substance: DAPAGLIFLOZIN PROPANEDIOL
  14. FERROUS SULFATE [Concomitant]
     Active Substance: FERROUS SULFATE
  15. FLUOXETINE HYDROCHLORIDE [Concomitant]
     Active Substance: FLUOXETINE HYDROCHLORIDE
  16. FLUTICASONE [Concomitant]
     Active Substance: FLUTICASONE
  17. HYDROMORPHONE [Concomitant]
     Active Substance: HYDROMORPHONE
  18. ISOSORBIDE [Concomitant]
     Active Substance: ISOSORBIDE
  19. LIDOCAINE [Concomitant]
     Active Substance: LIDOCAINE
  20. LUBIPROSTONE [Concomitant]
     Active Substance: LUBIPROSTONE
  21. MIRTAZAPINE [Concomitant]
     Active Substance: MIRTAZAPINE
  22. MOVANTIK [Concomitant]
     Active Substance: NALOXEGOL OXALATE
  23. NARCAN [Concomitant]
     Active Substance: NALOXONE HYDROCHLORIDE
  24. NITROGLYCERIN [Concomitant]
     Active Substance: NITROGLYCERIN
  25. OMEPRAZOLE SODIUM [Concomitant]
     Active Substance: OMEPRAZOLE SODIUM
  26. POTASSIUM [Concomitant]
     Active Substance: POTASSIUM
  27. TAMSULOSIN HYDROCHLORIDE [Concomitant]
     Active Substance: TAMSULOSIN HYDROCHLORIDE
  28. TESTOSTERONE [Concomitant]
     Active Substance: TESTOSTERONE
  29. TORSEMIDE [Concomitant]
     Active Substance: TORSEMIDE
  30. TRELEGY ELLIPTA [Concomitant]
     Active Substance: FLUTICASONE FUROATE\UMECLIDINIUM BROMIDE\VILANTEROL TRIFENATATE
  31. VITAMIN D NOS [Concomitant]
     Active Substance: CHOLECALCIFEROL\ERGOCALCIFEROL
  32. VITAMIN E [Concomitant]
     Active Substance: .ALPHA.-TOCOPHEROL

REACTIONS (1)
  - Dyspnoea [Not Recovered/Not Resolved]
